FAERS Safety Report 11516895 (Version 1)
Quarter: 2015Q3

REPORT INFORMATION
  Report Type: Spontaneous
  Country: US (occurrence: None)
  Receive Date: 20150916
  Receipt Date: 20150916
  Transmission Date: 20151125
  Serious: Yes (Other)
  Sender: FDA-Public Use
  Company Number: None

PATIENT
  Age: 81 Year
  Sex: Male
  Weight: 80.65 kg

DRUGS (1)
  1. PREVALITE [Suspect]
     Active Substance: CHOLESTYRAMINE
     Indication: BLOOD CHOLESTEROL ABNORMAL
     Dosage: SPOONFUL ORAL/SUSPENSION
     Route: 048
     Dates: start: 200906, end: 20150813

REACTIONS (5)
  - Abdominal pain upper [None]
  - Back pain [None]
  - Gallbladder disorder [None]
  - Chest pain [None]
  - Flank pain [None]

NARRATIVE: CASE EVENT DATE: 20150813
